FAERS Safety Report 4325449-7 (Version None)
Quarter: 2004Q1

REPORT INFORMATION
  Report Type: 
  Country: None (occurrence: None)
  Receive Date: 20040329
  Receipt Date: 20040315
  Transmission Date: 20041129
  Serious: Yes (Death, Hospitalization)
  Sender: FDA-Public Use
  Company Number: PHRM2004FR01195

PATIENT
  Age: 79 Year
  Sex: Female
  Weight: 60 kg

DRUGS (6)
  1. GLEEVEC [Suspect]
     Indication: CHRONIC MYELOID LEUKAEMIA
     Dosage: 400 MG DAILY
     Route: 048
     Dates: start: 20040211, end: 20040229
  2. SULFASALAZINE [Concomitant]
  3. PLAVIX [Concomitant]
  4. IKOREL [Concomitant]
  5. AVLOCARDYL [Concomitant]
  6. TRINIPATCH [Concomitant]
     Indication: ANGINA PECTORIS

REACTIONS (7)
  - ACUTE PULMONARY OEDEMA [None]
  - ASTHENIA [None]
  - CARDIAC FAILURE [None]
  - CARDIOMEGALY [None]
  - DYSPNOEA [None]
  - ISCHAEMIC CARDIOMYOPATHY [None]
  - OEDEMA PERIPHERAL [None]
